FAERS Safety Report 8934969 (Version 1)
Quarter: 2012Q4

REPORT INFORMATION
  Report Type: 
  Country: US (occurrence: US)
  Receive Date: 20121129
  Receipt Date: 20121129
  Transmission Date: 20130627
  Serious: No
  Sender: FDA-Public Use
  Company Number: US-009507513-1211USA010230

PATIENT
  Sex: Male
  Weight: 94.8 kg

DRUGS (7)
  1. VICTRELIS [Suspect]
     Indication: HEPATITIS C
     Dosage: 4 DF, 3XD
     Route: 048
     Dates: end: 20121113
  2. PEGINTRON [Suspect]
     Indication: HEPATITIS C
     Dosage: UNK, qw
     Route: 058
     Dates: start: 20120312, end: 20121113
  3. RIBASPHERE [Suspect]
     Indication: HEPATITIS C
     Dosage: 3 DF, qam
     Dates: end: 20121113
  4. RIBASPHERE [Suspect]
     Dosage: 3 DF, qpm
  5. CARISOPRODOL [Concomitant]
     Dosage: 1 DF, qd
     Route: 048
  6. ALPRAZOLAM [Concomitant]
     Dosage: 2 DF, qd
     Route: 048
  7. ACETAMINOPHEN (+) HYDROCODONE BITARTRATE [Concomitant]
     Dosage: 1 DF, prn
     Route: 048

REACTIONS (4)
  - Cold sweat [Not Recovered/Not Resolved]
  - Disturbance in attention [Not Recovered/Not Resolved]
  - Anxiety [Not Recovered/Not Resolved]
  - Nervousness [Not Recovered/Not Resolved]
